FAERS Safety Report 10174895 (Version 1)
Quarter: 2014Q2

REPORT INFORMATION
  Report Type: Spontaneous
  Country: US (occurrence: None)
  Receive Date: 20140416
  Receipt Date: 20140416
  Transmission Date: 20141212
  Serious: No
  Sender: FDA-Public Use
  Company Number: 163-POMAL-14021415

PATIENT
  Age: 68 Year
  Sex: Male
  Weight: 83.9 kg

DRUGS (6)
  1. POMALYST (POMALIDOMIDE) (4 MILLIGRAM CAPSULES) [Suspect]
     Indication: PLASMA CELL MYELOMA
     Dosage: 4 MG, 14 IN 14 D, PO
     Route: 048
     Dates: start: 20130805
  2. ACYCLOVIR (ACICLOVIR) (ACICLOVIR) [Concomitant]
  3. PROMETHAZINE HCL (PROMETHAZINE HYDROCHLORIDE0 [Concomitant]
  4. FENTANYL (FENTANYL) [Concomitant]
  5. LUPRON DEPORT (LEUPRORELIN ACETATE) [Concomitant]
  6. AMLODIPINE BESYLATE (AMLODIPINE BESILATE) [Concomitant]

REACTIONS (1)
  - Erythema [None]
